FAERS Safety Report 8389568 (Version 3)
Quarter: 2012Q4

REPORT INFORMATION
  Report Type: 
  Country: JP (occurrence: JP)
  Receive Date: 20120203
  Receipt Date: 20121003
  Transmission Date: 20130627
  Serious: Yes (Disabling, Other)
  Sender: FDA-Public Use
  Company Number: JP-ABBOTT-12P-087-0898917-00

PATIENT
  Age: 58 Year
  Sex: Male
  Weight: 52.1 kg

DRUGS (7)
  1. HUMIRA [Suspect]
     Indication: CROHN^S DISEASE
     Route: 058
     Dates: start: 20110202, end: 20110202
  2. HUMIRA [Suspect]
     Dates: start: 20110216, end: 20110216
  3. HUMIRA [Suspect]
     Dates: start: 20110302, end: 20110914
  4. LANSOPRAZOLE [Concomitant]
     Indication: GASTROINTESTINAL DISORDER
     Route: 048
     Dates: start: 20101109
  5. ITRACONAZOLE [Concomitant]
     Indication: SYSTEMIC CANDIDA
     Route: 048
     Dates: start: 20110708
  6. MESALAZINE [Concomitant]
     Indication: CROHN^S DISEASE
     Route: 048
     Dates: start: 20110326
  7. PREDNISOLONE [Concomitant]
     Indication: GASTROINTESTINAL DISORDER
     Route: 048
     Dates: start: 20080910

REACTIONS (7)
  - Enterocolitis [Recovered/Resolved with Sequelae]
  - Fistula [Unknown]
  - Intestinal dilatation [Unknown]
  - Pyrexia [Unknown]
  - Small intestinal obstruction [Recovered/Resolved with Sequelae]
  - Abdominal neoplasm [Unknown]
  - Malabsorption [Not Recovered/Not Resolved]
